FAERS Safety Report 5855615-0 (Version None)
Quarter: 2008Q3

REPORT INFORMATION
  Report Type: 
  Country: None (occurrence: None)
  Receive Date: 20080821
  Receipt Date: 20080806
  Transmission Date: 20090109
  Serious: Yes (Other)
  Sender: FDA-Public Use
  Company Number: 2008S1010170

PATIENT
  Age: 84 Year
  Sex: Female
  Weight: 61.2356 kg

DRUGS (3)
  1. FENTANYL TRANSDERMAL SYSTEM [Suspect]
     Indication: OESOPHAGEAL STENOSIS
     Dosage: 50 UG; EVERY HOUR; TRANSDERMAL
     Route: 062
     Dates: start: 20080608
  2. FENTANYL TRANSDERMAL SYSTEM [Suspect]
     Indication: PAIN
     Dosage: 50 UG; EVERY HOUR; TRANSDERMAL
     Route: 062
     Dates: start: 20080608
  3. HYDROCODONE BITARTRATE AND ACETAMINOPHEN [Concomitant]

REACTIONS (6)
  - CHEST PAIN [None]
  - DIZZINESS [None]
  - MALAISE [None]
  - MENTAL DISORDER [None]
  - NAUSEA [None]
  - PELVIC MASS [None]
